FAERS Safety Report 17026503 (Version 1)
Quarter: 2019Q4

REPORT INFORMATION
  Report Type: Report from Study
  Country: ES (occurrence: ES)
  Receive Date: 20191113
  Receipt Date: 20191113
  Transmission Date: 20200122
  Serious: Yes (Hospitalization)
  Sender: FDA-Public Use
  Company Number: ES-MYLANLABS-2019M1107579

PATIENT
  Age: 32 Year
  Sex: Female

DRUGS (3)
  1. ATAZANAVIR SULFATE. [Suspect]
     Active Substance: ATAZANAVIR SULFATE
     Indication: HIV INFECTION CDC CATEGORY C
     Dosage: 300 MILLIGRAM, QD (300 MG CENA)
     Route: 048
     Dates: start: 20170522, end: 20170524
  2. AMBISOME [Suspect]
     Active Substance: AMPHOTERICIN B
     Indication: MENINGITIS CRYPTOCOCCAL
     Dosage: 300 MILLIGRAM, QD (300 MG DIA)
     Route: 042
     Dates: start: 20170422, end: 20170524
  3. FLUCYTOSINE. [Suspect]
     Active Substance: FLUCYTOSINE
     Indication: MENINGITIS CRYPTOCOCCAL
     Dosage: 2000 MILLIGRAM, QD (2000 MG DIA)
     Route: 042
     Dates: start: 20170422, end: 20170524

REACTIONS (1)
  - Hepatitis [Recovered/Resolved]

NARRATIVE: CASE EVENT DATE: 20170524
